FAERS Safety Report 8166629-2 (Version None)
Quarter: 2012Q1

REPORT INFORMATION
  Report Type: 
  Country: None (occurrence: None)
  Receive Date: 20120227
  Receipt Date: 20120215
  Transmission Date: 20120608
  Serious: Yes (Hospitalization)
  Sender: FDA-Public Use
  Company Number: US-SANOFI-AVENTIS-2012SA010008

PATIENT
  Age: 83 Year
  Sex: Female
  Weight: 49 kg

DRUGS (11)
  1. FUROSEMIDE [Suspect]
     Route: 048
  2. BLINDED THERAPY [Suspect]
     Indication: RHEUMATOID ARTHRITIS
     Route: 048
     Dates: start: 20100224, end: 20110624
  3. PLACEBO [Suspect]
     Indication: RHEUMATOID ARTHRITIS
     Route: 048
     Dates: start: 20100224, end: 20110624
  4. ATORVASTATIN [Concomitant]
     Route: 048
     Dates: start: 20050101
  5. LOTREL [Concomitant]
     Indication: HYPERTENSION
     Dosage: 10/20 MG
     Route: 048
     Dates: start: 19950101
  6. BLINDED THERAPY [Suspect]
     Indication: OSTEOARTHRITIS
     Route: 048
     Dates: start: 20100224, end: 20110624
  7. ASPIRIN [Concomitant]
     Indication: CARDIOVASCULAR EVENT PROPHYLAXIS
     Route: 048
     Dates: start: 19900101
  8. FUROSEMIDE [Suspect]
     Indication: HYPERTENSION
     Route: 048
     Dates: start: 20110624
  9. PLACEBO [Suspect]
     Indication: OSTEOARTHRITIS
     Route: 048
     Dates: start: 20100224, end: 20110624
  10. NEXIUM [Concomitant]
     Indication: PROPHYLAXIS
     Dates: start: 20100224, end: 20110124
  11. RISEDRONIC ACID [Concomitant]
     Indication: OSTEOPOROSIS
     Route: 048
     Dates: start: 19980101

REACTIONS (1)
  - SYNCOPE [None]
